FAERS Safety Report 5909253-1 (Version None)
Quarter: 2008Q4

REPORT INFORMATION
  Report Type: 
  Country: None (occurrence: None)
  Receive Date: 20081006
  Receipt Date: 20080924
  Transmission Date: 20090506
  Serious: Yes (Death, Other)
  Sender: FDA-Public Use
  Company Number: JP-PFIZER INC-2008077521

PATIENT
  Age: 73 Year
  Sex: Female

DRUGS (5)
  1. REVATIO [Suspect]
     Indication: PULMONARY HYPERTENSION
     Dosage: DAILY DOSE:60MG
     Route: 048
     Dates: start: 20080801, end: 20080831
  2. WARFARIN SODIUM [Concomitant]
     Route: 048
  3. LASIX [Concomitant]
     Route: 048
  4. ALDACTONE [Concomitant]
     Route: 048
  5. FRANDOL [Concomitant]
     Route: 062

REACTIONS (1)
  - RESPIRATORY FAILURE [None]
